FAERS Safety Report 9312788 (Version 2)
Quarter: 2013Q2

REPORT INFORMATION
  Report Type: Spontaneous
  Country: US (occurrence: US)
  Receive Date: 20130528
  Receipt Date: 20130619
  Transmission Date: 20140414
  Serious: No
  Sender: FDA-Public Use
  Company Number: US-009507513-1305USA015975

PATIENT
  Age: 31 Year
  Sex: Female
  Weight: 63.49 kg

DRUGS (1)
  1. CLARITIN [Suspect]
     Indication: SINUS CONGESTION
     Dosage: 10 MG, QD
     Route: 048
     Dates: start: 20130415, end: 20130514

REACTIONS (1)
  - Drug ineffective [Unknown]
